FAERS Safety Report 10184205 (Version 1)
Quarter: 2014Q2

REPORT INFORMATION
  Report Type: Spontaneous
  Country: US (occurrence: US)
  Receive Date: 20140520
  Receipt Date: 20140520
  Transmission Date: 20141212
  Serious: No
  Sender: FDA-Public Use
  Company Number: US-ASTRAZENECA-2013SE49952

PATIENT
  Age: 43 Year
  Sex: Female
  Weight: 90.7 kg

DRUGS (2)
  1. BUDESONIDE [Suspect]
     Indication: COLITIS
     Dosage: GENERIC
     Route: 048
     Dates: start: 2005, end: 2012
  2. SULFASALAZINE [Concomitant]
     Indication: DIARRHOEA
     Dosage: UNKNOWN BID
     Route: 048
     Dates: start: 201301

REACTIONS (7)
  - Diarrhoea [Not Recovered/Not Resolved]
  - Pain in extremity [Not Recovered/Not Resolved]
  - Fatigue [Not Recovered/Not Resolved]
  - Back pain [Unknown]
  - Pain [Unknown]
  - Anxiety [Not Recovered/Not Resolved]
  - Intentional product misuse [Unknown]
